FAERS Safety Report 9913550 (Version 1)
Quarter: 2014Q1

REPORT INFORMATION
  Report Type: Report from Study
  Country: BR (occurrence: BR)
  Receive Date: 20140220
  Receipt Date: 20140220
  Transmission Date: 20141002
  Serious: Yes (Death)
  Sender: FDA-Public Use
  Company Number: BR-SA-2014SA019311

PATIENT
  Sex: Male

DRUGS (1)
  1. MYOZYME [Suspect]
     Indication: GLYCOGEN STORAGE DISEASE TYPE II
     Route: 042
     Dates: start: 201311, end: 20140215

REACTIONS (3)
  - Shock [Fatal]
  - Hepatic enzyme increased [Unknown]
  - Pyrexia [Unknown]
